FAERS Safety Report 9739022 (Version 1)
Quarter: 2013Q4

REPORT INFORMATION
  Report Type: Spontaneous
  Country: BR (occurrence: BR)
  Receive Date: 20131209
  Receipt Date: 20131209
  Transmission Date: 20140711
  Serious: Yes (Hospitalization, Other)
  Sender: FDA-Public Use
  Company Number: PHHY2013BR142904

PATIENT
  Age: 71 Year
  Sex: Female

DRUGS (2)
  1. DIOVAN [Suspect]
     Dosage: 320 MG, UNK
  2. GALVUS [Suspect]
     Dosage: UNK UKN, UNK

REACTIONS (3)
  - Fall [Unknown]
  - General physical health deterioration [Unknown]
  - Pneumonia [Unknown]
